FAERS Safety Report 21727508 (Version 1)
Quarter: 2022Q4

REPORT INFORMATION
  Report Type: Report from Study
  Country: US (occurrence: US)
  Receive Date: 20221214
  Receipt Date: 20221214
  Transmission Date: 20230113
  Serious: Yes (Other)
  Sender: FDA-Public Use
  Company Number: US-UCBSA-2022064706

PATIENT
  Sex: Female

DRUGS (1)
  1. CERTOLIZUMAB PEGOL [Suspect]
     Active Substance: CERTOLIZUMAB PEGOL
     Indication: Rheumatoid arthritis
     Dosage: 400 MILLIGRAM, EV 4 WEEKS
     Dates: start: 20220719

REACTIONS (5)
  - Contusion [Unknown]
  - Post-traumatic neck syndrome [Unknown]
  - Loss of personal independence in daily activities [Unknown]
  - Bursitis [Unknown]
  - Headache [Unknown]

NARRATIVE: CASE EVENT DATE: 20220101
